FAERS Safety Report 7407682-0 (Version None)
Quarter: 2011Q2

REPORT INFORMATION
  Report Type: 
  Country: None (occurrence: None)
  Receive Date: 20110401
  Receipt Date: 20110321
  Transmission Date: 20111010
  Serious: Yes (Other)
  Sender: FDA-Public Use
  Company Number: DSM-2011-00328

PATIENT
  Sex: Male

DRUGS (1)
  1. OLMESARTAN MEDOXOMIL/HYDROCHLOROTHIAZIDE (BENCAR HCT) [Suspect]
     Indication: PRODUCT USED FOR UNKNOWN INDICATION
     Dosage: ORAL
     Route: 048

REACTIONS (1)
  - HYPOTENSION [None]
